FAERS Safety Report 7311618-0 (Version None)
Quarter: 2011Q1

REPORT INFORMATION
  Report Type: 
  Country: None (occurrence: None)
  Receive Date: 20110224
  Receipt Date: 20110218
  Transmission Date: 20110831
  Serious: Yes (Hospitalization)
  Sender: FDA-Public Use
  Company Number: US-B.I. PHARMACEUTICALS,INC./RIDGEFIELD-2011-BP-03787BP

PATIENT
  Age: 61 Year
  Sex: Male

DRUGS (5)
  1. HAWTHORNE BERRY [Suspect]
  2. COENZYME Q10 [Suspect]
  3. METOPROLOL [Concomitant]
     Indication: HYPERTENSION
  4. ASPIRIN [Concomitant]
  5. PRADAXA [Suspect]
     Indication: ATRIAL FIBRILLATION
     Dosage: 300 MG
     Route: 048
     Dates: start: 20101207

REACTIONS (2)
  - ATRIAL FLUTTER [None]
  - ACTIVATED PARTIAL THROMBOPLASTIN TIME SHORTENED [None]
